FAERS Safety Report 7080946-9 (Version None)
Quarter: 2010Q4

REPORT INFORMATION
  Report Type: 
  Country: None (occurrence: None)
  Receive Date: 20101103
  Receipt Date: 20101025
  Transmission Date: 20110411
  Serious: Yes (Hospitalization)
  Sender: FDA-Public Use
  Company Number: FR-BAXTER-2010BH026762

PATIENT
  Age: 42 Year
  Sex: Male

DRUGS (4)
  1. GAMMAGARD LIQUID [Suspect]
     Indication: IMMUNODEFICIENCY
     Route: 042
     Dates: start: 20101001, end: 20101001
  2. GAMMAGARD LIQUID [Suspect]
     Route: 065
     Dates: start: 20100628, end: 20100628
  3. GAMMAGARD LIQUID [Suspect]
     Route: 065
     Dates: start: 20100730, end: 20100730
  4. PHENERGAN [Suspect]
     Indication: PREMEDICATION
     Route: 042
     Dates: start: 20101001, end: 20101001

REACTIONS (5)
  - DYSARTHRIA [None]
  - HYPOTENSION [None]
  - NAUSEA [None]
  - SOMNOLENCE [None]
  - SPEECH DISORDER [None]
